FAERS Safety Report 6230057-7 (Version None)
Quarter: 2009Q2

REPORT INFORMATION
  Report Type: 
  Country: None (occurrence: None)
  Receive Date: 20090615
  Receipt Date: 20090603
  Transmission Date: 20091009
  Serious: Yes (Other)
  Sender: FDA-Public Use
  Company Number: JP-PFIZER INC-2009223166

PATIENT
  Age: 63 Year

DRUGS (1)
  1. LINEZOLID [Suspect]
     Indication: MENINGITIS

REACTIONS (1)
  - BONE MARROW FAILURE [None]
